FAERS Safety Report 9175959 (Version 2)
Quarter: 2013Q2

REPORT INFORMATION
  Report Type: Spontaneous
  Country: JP (occurrence: JP)
  Receive Date: 20130320
  Receipt Date: 20130401
  Transmission Date: 20140414
  Serious: Yes (Hospitalization)
  Sender: FDA-Public Use
  Company Number: JP-MYLANLABS-2013S1005490

PATIENT
  Age: 63 Year
  Sex: Male
  Weight: 54.5 kg

DRUGS (16)
  1. EPIRUBICIN [Suspect]
     Indication: HEPATIC CANCER
     Route: 013
     Dates: start: 20130221, end: 20130221
  2. TSU-68 [Suspect]
     Indication: HEPATIC CANCER
     Route: 048
     Dates: start: 20130301, end: 20130306
  3. AMLODIPINE [Concomitant]
     Indication: HYPERTENSION
  4. FAMOSTAGINE [Concomitant]
     Indication: GASTRITIS
     Route: 048
  5. MECOBALAMIN [Concomitant]
     Indication: PERIPHERAL NERVE INJURY
     Route: 048
  6. MAGMITT [Concomitant]
     Indication: CONSTIPATION
     Route: 048
  7. SENNARIDE [Concomitant]
     Indication: CONSTIPATION
     Route: 048
  8. BROTIZOLAM [Concomitant]
     Indication: INSOMNIA
     Route: 048
  9. HALCION [Concomitant]
     Indication: INSOMNIA
     Route: 048
  10. UREPEARL [Concomitant]
     Indication: DRY SKIN
     Route: 061
  11. RESTAMIN A KOWA [Concomitant]
     Indication: PRODUCT USED FOR UNKNOWN INDICATION
     Route: 061
  12. TEARBALANCE MINIMS [Concomitant]
     Indication: DRY EYE
     Route: 047
  13. DEXALTIN [Concomitant]
     Indication: STOMATITIS
     Route: 061
     Dates: start: 20130303
  14. HACHIAZULE /00317302/ [Concomitant]
     Indication: STOMATITIS
     Route: 048
     Dates: start: 20130303
  15. CALONAL [Concomitant]
     Indication: PYREXIA
     Route: 048
     Dates: start: 20130305, end: 20130308
  16. NAIXAN /00256201/ [Concomitant]
     Indication: PYREXIA
     Route: 048
     Dates: start: 20130305

REACTIONS (1)
  - Liver abscess [Recovering/Resolving]
